FAERS Safety Report 9131478 (Version 1)
Quarter: 2013Q1

REPORT INFORMATION
  Report Type: Spontaneous
  Country: US (occurrence: US)
  Receive Date: 20130301
  Receipt Date: 20130301
  Transmission Date: 20140127
  Serious: No
  Sender: FDA-Public Use
  Company Number: US-PFIZER INC-2012296406

PATIENT
  Sex: Female

DRUGS (1)
  1. PRISTIQ [Suspect]
     Dosage: 100 MG, DAILY
     Dates: start: 201010

REACTIONS (2)
  - Poor quality drug administered [Unknown]
  - Product packaging quantity issue [Unknown]
